FAERS Safety Report 18270545 (Version 3)
Quarter: 2020Q4

REPORT INFORMATION
  Report Type: Report from Study
  Country: US (occurrence: US)
  Receive Date: 20200915
  Receipt Date: 20201104
  Transmission Date: 20210113
  Serious: Yes (Hospitalization, Disabling, Other)
  Sender: FDA-Public Use
  Company Number: US-JNJFOC-A-NJ2017-164095

PATIENT
  Age: 74 Year
  Sex: Female
  Weight: 51.3 kg

DRUGS (11)
  1. OPSUMIT [Suspect]
     Active Substance: MACITENTAN
     Dosage: 10 MG, QD
     Route: 048
  2. OFEV [Suspect]
     Active Substance: NINTEDANIB
     Indication: IDIOPATHIC PULMONARY FIBROSIS
     Dosage: 1 IN 0.5 DAY.
     Route: 048
     Dates: start: 20190719
  3. OFEV [Suspect]
     Active Substance: NINTEDANIB
     Route: 048
  4. DOXYCYCLINE. [Concomitant]
     Active Substance: DOXYCYCLINE
     Dosage: UNK
     Dates: start: 20170223
  5. AUGMENTIN [Concomitant]
     Active Substance: AMOXICILLIN\CLAVULANATE POTASSIUM
     Dosage: UNK
     Dates: start: 20170223
  6. BACTRIM DS [Concomitant]
     Active Substance: SULFAMETHOXAZOLE\TRIMETHOPRIM
     Dosage: UNK
     Dates: start: 20170223
  7. AMLODIPINE [Concomitant]
     Active Substance: AMLODIPINE BESYLATE
  8. OXYGEN. [Concomitant]
     Active Substance: OXYGEN
  9. MYCOPHENOLATE [Suspect]
     Active Substance: MYCOPHENOLIC ACID
     Indication: PRODUCT USED FOR UNKNOWN INDICATION
     Route: 065
  10. ADCIRCA [Suspect]
     Active Substance: TADALAFIL
     Indication: PRODUCT USED FOR UNKNOWN INDICATION
  11. OPSUMIT [Suspect]
     Active Substance: MACITENTAN
     Indication: PULMONARY ARTERIAL HYPERTENSION
     Dosage: 10 MG, QD
     Route: 048
     Dates: start: 20160713

REACTIONS (26)
  - Oxygen consumption increased [Not Recovered/Not Resolved]
  - Chest discomfort [Not Recovered/Not Resolved]
  - Palpitations [Unknown]
  - Gastrointestinal pain [Unknown]
  - Feeling jittery [Unknown]
  - Abdominal pain upper [Unknown]
  - Dyspnoea [Not Recovered/Not Resolved]
  - Somnolence [Unknown]
  - Pneumonia [Recovered/Resolved]
  - Hypoxia [Not Recovered/Not Resolved]
  - Nasopharyngitis [Unknown]
  - Ear disorder [Unknown]
  - Eye laser surgery [Unknown]
  - Hypotension [Unknown]
  - Fatigue [Unknown]
  - Pulmonary fibrosis [Unknown]
  - Upper respiratory tract infection [Recovered/Resolved with Sequelae]
  - Malaise [Unknown]
  - Diarrhoea [Unknown]
  - Cough [Unknown]
  - Seasonal allergy [Unknown]
  - Toothache [Unknown]
  - Feeling abnormal [Recovering/Resolving]
  - Pulmonary hypertension [Not Recovered/Not Resolved]
  - Abdominal discomfort [Unknown]
  - Chest discomfort [Unknown]

NARRATIVE: CASE EVENT DATE: 20170223
